FAERS Safety Report 24714613 (Version 1)
Quarter: 2024Q4

REPORT INFORMATION
  Report Type: Spontaneous
  Country: US (occurrence: US)
  Receive Date: 20241209
  Receipt Date: 20241209
  Transmission Date: 20250115
  Serious: Yes (Hospitalization, Other)
  Sender: RANBAXY
  Company Number: US-SUN PHARMACEUTICAL INDUSTRIES LTD-2024R1-483276

PATIENT
  Age: 35 Year
  Sex: Female

DRUGS (5)
  1. URSODIOL [Suspect]
     Active Substance: URSODIOL
     Indication: Acute fatty liver of pregnancy
     Dosage: 300 MILLIGRAM, TID
     Route: 065
  2. AMPICILLIN [Suspect]
     Active Substance: AMPICILLIN
     Indication: Intra-amniotic injection
  3. GENTAMICIN [Suspect]
     Active Substance: GENTAMICIN
     Indication: Intra-amniotic injection
  4. BETAMETHASONE [Suspect]
     Active Substance: BETAMETHASONE
     Indication: Acute fatty liver of pregnancy
     Dosage: UNK
  5. CLINDAMYCIN [Suspect]
     Active Substance: CLINDAMYCIN
     Indication: Intra-amniotic injection

REACTIONS (4)
  - Exposure during pregnancy [Unknown]
  - Premature delivery [Unknown]
  - Ocular icterus [Recovering/Resolving]
  - Condition aggravated [Unknown]
